FAERS Safety Report 16272126 (Version 1)
Quarter: 2019Q2

REPORT INFORMATION
  Report Type: Spontaneous
  Country: JP (occurrence: JP)
  Receive Date: 20190506
  Receipt Date: 20190506
  Transmission Date: 20190711
  Serious: Yes (Hospitalization, Other)
  Sender: FDA-Public Use
  Company Number: JP-ACS-001417

PATIENT
  Age: 83 Year
  Sex: Female

DRUGS (1)
  1. AMPICILLIN /SULBACTAM [Suspect]
     Active Substance: AMPICILLIN SODIUM\SULBACTAM SODIUM
     Indication: CHOLECYSTITIS
     Route: 065

REACTIONS (2)
  - Vitamin K deficiency [Recovering/Resolving]
  - Shock haemorrhagic [Recovering/Resolving]
